FAERS Safety Report 8422907-0 (Version None)
Quarter: 2012Q2

REPORT INFORMATION
  Report Type: 
  Country: None (occurrence: None)
  Receive Date: 20120608
  Receipt Date: 20120605
  Transmission Date: 20120825
  Serious: Yes (Hospitalization)
  Sender: FDA-Public Use
  Company Number: US-GLAXOSMITHKLINE-A0978422A

PATIENT
  Age: 17 Year
  Sex: Female
  Weight: 47.6 kg

DRUGS (14)
  1. MERCAPTOPURINE [Suspect]
     Indication: T-CELL TYPE ACUTE LEUKAEMIA
     Dosage: 60MGM2 CYCLIC
     Route: 048
  2. VINCRISTINE [Suspect]
     Indication: T-CELL TYPE ACUTE LEUKAEMIA
     Dosage: 1.5MGM2 CYCLIC
     Route: 042
  3. NYSTATIN [Concomitant]
  4. CYCLOPHOSPHAMIDE [Suspect]
     Indication: T-CELL TYPE ACUTE LEUKAEMIA
     Dosage: 1000MGM2 CYCLIC
     Route: 042
  5. LANSOPRAZOLE [Concomitant]
  6. INSULIN ASPART [Concomitant]
  7. PIPERACILLIN AND TAZOBACTAM [Concomitant]
  8. VANCOMYCIN [Concomitant]
  9. METHOTREXATE [Suspect]
     Indication: T-CELL TYPE ACUTE LEUKAEMIA
     Route: 037
  10. VORICONAZOLE [Concomitant]
  11. ONCASPAR [Suspect]
     Indication: T-CELL TYPE ACUTE LEUKAEMIA
     Route: 030
  12. NELARABINE [Suspect]
     Indication: T-CELL TYPE ACUTE LEUKAEMIA
     Dosage: 650MGM2 CYCLIC
     Route: 042
     Dates: start: 20120413
  13. CYTARABINE [Suspect]
     Indication: T-CELL TYPE ACUTE LEUKAEMIA
     Dosage: 75MGM2 CYCLIC
     Route: 042
  14. DALTEPARIN SODIUM [Suspect]
     Indication: PRODUCT USED FOR UNKNOWN INDICATION

REACTIONS (34)
  - EPISTAXIS [None]
  - HYPERGLYCAEMIA [None]
  - PYREXIA [None]
  - EATING DISORDER [None]
  - DYSPHAGIA [None]
  - NEUTROPENIA [None]
  - HYPERTENSION [None]
  - TREMOR [None]
  - LOSS OF CONSCIOUSNESS [None]
  - SINUS TACHYCARDIA [None]
  - HYPERTRIGLYCERIDAEMIA [None]
  - ASCITES [None]
  - SOMNOLENCE [None]
  - PLEURAL EFFUSION [None]
  - CONFUSIONAL STATE [None]
  - DIARRHOEA [None]
  - BLOOD BILIRUBIN INCREASED [None]
  - HYPOPHAGIA [None]
  - CEREBRAL INFARCTION [None]
  - ACUTE RESPIRATORY DISTRESS SYNDROME [None]
  - CAECITIS [None]
  - WHITE BLOOD CELL COUNT DECREASED [None]
  - HYPOALBUMINAEMIA [None]
  - HYPOCALCAEMIA [None]
  - MELAENA [None]
  - SPLENIC INFARCTION [None]
  - DEPRESSED LEVEL OF CONSCIOUSNESS [None]
  - ANAEMIA [None]
  - GENERAL PHYSICAL HEALTH DETERIORATION [None]
  - CEREBROVASCULAR ACCIDENT [None]
  - OEDEMA PERIPHERAL [None]
  - HYPOKALAEMIA [None]
  - DYSKINESIA [None]
  - PULMONARY OEDEMA [None]
